FAERS Safety Report 17029182 (Version 2)
Quarter: 2019Q4

REPORT INFORMATION
  Report Type: Report from Study
  Country: ZA (occurrence: ZA)
  Receive Date: 20191114
  Receipt Date: 20191128
  Transmission Date: 20200122
  Serious: Yes (Life-Threatening, Hospitalization)
  Sender: FDA-Public Use
  Company Number: ZA-SA-2019SA307792

PATIENT
  Age: 56 Year
  Sex: Male

DRUGS (9)
  1. INSULIN GLARGINE [Suspect]
     Active Substance: INSULIN GLARGINE
     Dosage: 50 U, HS
     Route: 065
  2. INSULIN GLULISINE [Suspect]
     Active Substance: INSULIN GLULISINE
     Dosage: -28 UNITS | BL-28 UNITS | BS-28 UNITS | BB-30 UNITS
  3. IMUNOVIR [Concomitant]
     Dosage: 100 MG, QD (AFTER BREAKFAST)
     Route: 065
     Dates: start: 20191107
  4. CARDURA XL [Concomitant]
     Active Substance: DOXAZOSIN MESYLATE
     Dosage: 4 MG, QD (AFTER BREAKFAST)
     Dates: start: 20191107
  5. ATAZOR [Concomitant]
     Dosage: 300 MG, QD (AFTER BREAKFAST)
     Route: 065
     Dates: start: 20191107
  6. ADCO-SIMVASTATIN [Concomitant]
     Active Substance: SIMVASTATIN
     Dosage: 10 MG, HS
     Dates: start: 20191107
  7. ONGLYZA [Concomitant]
     Active Substance: SAXAGLIPTIN HYDROCHLORIDE
     Dosage: 5 MG, QD (BEFORE BREAKFAST)
     Route: 065
     Dates: start: 20191105
  8. 3TC [Concomitant]
     Active Substance: LAMIVUDINE
     Dosage: 150 MG, QD (AFTER BREAKFAST)
     Route: 065
     Dates: start: 20191107
  9. ONGLYZA [Concomitant]
     Active Substance: SAXAGLIPTIN HYDROCHLORIDE
     Dosage: 2.5 MG, QD (AFTER BREAKFAST)
     Dates: start: 20191107

REACTIONS (3)
  - Hunger [Recovered/Resolved]
  - Hypoglycaemia [Recovered/Resolved]
  - Blood pressure increased [Recovered/Resolved]

NARRATIVE: CASE EVENT DATE: 20191101
